FAERS Safety Report 10533425 (Version 3)
Quarter: 2015Q2

REPORT INFORMATION
  Report Type: Spontaneous
  Country: US (occurrence: US)
  Receive Date: 20141022
  Receipt Date: 20150408
  Transmission Date: 20150821
  Serious: Yes (Hospitalization)
  Sender: FDA-Public Use
  Company Number: US-PFIZER INC-2014286909

PATIENT
  Age: 73 Year
  Sex: Female
  Weight: 61 kg

DRUGS (10)
  1. EPLERENONE. [Suspect]
     Active Substance: EPLERENONE
     Dosage: UNK
  2. XANAX [Concomitant]
     Active Substance: ALPRAZOLAM
     Indication: HYPERTENSION
     Dosage: 0.5 DF, 1X/DAY
     Dates: start: 201401
  3. SYNTHROID [Concomitant]
     Active Substance: LEVOTHYROXINE SODIUM
     Indication: HYPOTHYROIDISM
     Dosage: UNK, 1X/DAY
     Dates: start: 199801
  4. EPLERENONE. [Suspect]
     Active Substance: EPLERENONE
     Indication: BLOOD PRESSURE
     Dosage: 25 MG, 1X/DAY
     Route: 048
     Dates: start: 2011
  5. QUESTRAN [Concomitant]
     Active Substance: CHOLESTYRAMINE
     Dosage: UNK
     Dates: start: 2011
  6. SYNTHROID [Concomitant]
     Active Substance: LEVOTHYROXINE SODIUM
     Dosage: UNK
     Dates: start: 1998
  7. BYSTOLIC [Concomitant]
     Active Substance: NEBIVOLOL HYDROCHLORIDE
     Indication: HYPERTENSION
     Dosage: 10 MG, 2X/DAY
     Dates: start: 2009
  8. QUESTRAN [Concomitant]
     Active Substance: CHOLESTYRAMINE
     Indication: IRRITABLE BOWEL SYNDROME
     Dosage: 1 DF, DAILY
     Dates: start: 201101
  9. XANAX [Concomitant]
     Active Substance: ALPRAZOLAM
     Dosage: UNK
     Dates: start: 2014
  10. BYSTOLIC [Concomitant]
     Active Substance: NEBIVOLOL HYDROCHLORIDE
     Dosage: UNK
     Dates: start: 2010

REACTIONS (3)
  - Nervousness [Not Recovered/Not Resolved]
  - Drug hypersensitivity [Recovered/Resolved]
  - Pallor [Not Recovered/Not Resolved]
